FAERS Safety Report 4719536-9 (Version None)
Quarter: 2005Q3

REPORT INFORMATION
  Report Type: 
  Country: None (occurrence: None)
  Receive Date: 20050719
  Receipt Date: 20050719
  Transmission Date: 20060218
  Serious: Yes (Hospitalization)
  Sender: FDA-Public Use
  Company Number: None

PATIENT
  Sex: Male

DRUGS (10)
  1. IBUPROFEN [Suspect]
     Indication: ARTHRITIS
     Dosage: 600 MG TID ORAL
     Route: 048
  2. ATENOLOL [Concomitant]
  3. DOCUSATE [Concomitant]
  4. GLYBURIDE [Concomitant]
  5. HYDOCHLOROTHIAZIDE [Concomitant]
  6. HYDROZXYZINE [Concomitant]
  7. LISINOPRIL [Concomitant]
  8. LOVASTATIN [Concomitant]
  9. PRAZOSIN HCL [Concomitant]
  10. TRAZODONE HCL [Concomitant]

REACTIONS (1)
  - GASTROINTESTINAL HAEMORRHAGE [None]
